FAERS Safety Report 7139299-X (Version None)
Quarter: 2010Q4

REPORT INFORMATION
  Report Type: 
  Country: None (occurrence: None)
  Receive Date: 20101206
  Receipt Date: 20101015
  Transmission Date: 20110411
  Serious: No
  Sender: FDA-Public Use
  Company Number: A0887095A

PATIENT
  Age: 26 Year
  Sex: Female

DRUGS (2)
  1. LAMICTAL [Suspect]
     Indication: EPILEPSY
     Dosage: 100MG TWICE PER DAY
     Route: 048
     Dates: start: 20080101
  2. PRENATAL VITAMINS [Concomitant]

REACTIONS (1)
  - DRUG EXPOSURE DURING PREGNANCY [None]
